FAERS Safety Report 16384576 (Version 6)
Quarter: 2021Q4

REPORT INFORMATION
  Report Type: Spontaneous
  Country: GB (occurrence: GB)
  Receive Date: 20190603
  Receipt Date: 20211101
  Transmission Date: 20220303
  Serious: Yes (Hospitalization, Other)
  Sender: FDA-Public Use
  Company Number: None

PATIENT
  Age: 21 Year
  Sex: Female

DRUGS (22)
  1. AMITRIPTYLINE [Suspect]
     Active Substance: AMITRIPTYLINE
     Indication: Product used for unknown indication
     Dosage: 100 MILLIGRAM DAILY; AT NIGHT
     Route: 048
  2. GABAPENTIN [Suspect]
     Active Substance: GABAPENTIN
     Indication: Product used for unknown indication
     Dosage: 3600 MILLIGRAM DAILY;
     Route: 048
  3. METOCLOPRAMIDE [Suspect]
     Active Substance: METOCLOPRAMIDE
     Indication: Abdominal pain
     Dosage: 30 MILLIGRAM DAILY; FREQUENCY - IN 8 HOURS 10 MG, 3/DAY
     Route: 065
  4. METOCLOPRAMIDE [Suspect]
     Active Substance: METOCLOPRAMIDE
     Indication: Vomiting
     Dosage: 50 MILLIGRAM DAILY;
  5. PREGABALIN [Suspect]
     Active Substance: PREGABALIN
     Indication: Product used for unknown indication
     Route: 065
  6. TRAMADOL [Suspect]
     Active Substance: TRAMADOL
     Indication: Product used for unknown indication
     Dosage: 400 MILLIGRAM DAILY; FREQUENCY -4 IN 1 DAYS 100 MG, 4/DAY
     Route: 048
     Dates: start: 200910, end: 200911
  7. TRAMADOL [Suspect]
     Active Substance: TRAMADOL
     Indication: Abdominal pain
     Dosage: 450 MILLIGRAM DAILY; FREQUENCY -3 IN 1 DAYS 50 MG, 3/DAY
     Route: 048
     Dates: start: 200904, end: 200909
  8. TRAMADOL [Suspect]
     Active Substance: TRAMADOL
     Dosage: FREQUENCY -1 IN 1 DAYS DOSAGE FORM: UNSPECIFIED
     Route: 065
  9. COCODAMOL [Suspect]
     Active Substance: ACETAMINOPHEN\CODEINE PHOSPHATE
     Indication: Product used for unknown indication
     Dosage: 32 DOSAGE FORMS DAILY; 30MG/500MG
     Route: 048
  10. BETAHISTINE [Suspect]
     Active Substance: BETAHISTINE
     Indication: Product used for unknown indication
     Dosage: 24 MILLIGRAM DAILY; DOSAGE FORM: UNSPECIFIED
     Route: 048
  11. DOMPERIDONE [Suspect]
     Active Substance: DOMPERIDONE
     Indication: Product used for unknown indication
     Dosage: UP TO THREE TIMES A DAY
     Route: 048
  12. PRUCALOPRIDE [Suspect]
     Active Substance: PRUCALOPRIDE
     Indication: Product used for unknown indication
     Dosage: 2 MILLIGRAM DAILY;
     Route: 048
  13. PRUCALOPRIDE [Suspect]
     Active Substance: PRUCALOPRIDE
     Dosage: 2 MILLIGRAM DAILY; PRUCALOPRIDE SUCCINATE- ACTIVE INGREDIENT
  14. CYCLIZINE [Suspect]
     Active Substance: CYCLIZINE
     Indication: Nausea
     Route: 065
  15. CYCLIZINE [Suspect]
     Active Substance: CYCLIZINE
     Indication: Vomiting
     Dosage: 50 MILLIGRAM DAILY;
     Route: 065
  16. CYCLIZINE [Suspect]
     Active Substance: CYCLIZINE
     Indication: Product used for unknown indication
     Dosage: 8 DOSAGE FORMS DAILY; 8 DOSAGE FORM, 1X/DAY:QD
     Route: 048
  17. LANSOPRAZOLE [Concomitant]
     Active Substance: LANSOPRAZOLE
     Dosage: 60 MILLIGRAM DAILY;
     Route: 048
  18. HYDROCORTISONE [Concomitant]
     Active Substance: HYDROCORTISONE
     Dosage: 1200 MILLIGRAM DAILY;
     Route: 048
     Dates: start: 200910, end: 200911
  19. HYDROCORTISONE [Concomitant]
     Active Substance: HYDROCORTISONE
     Dosage: 450 MILLIGRAM DAILY;
     Route: 048
  20. IBUPROFEN [Concomitant]
     Active Substance: IBUPROFEN
     Indication: Abdominal pain
     Dosage: 1200 MILLIGRAM DAILY; FREQUENCY -3 IN 8 HOURS 400 MG, 3/DAY
  21. OMEPRAZOLE [Concomitant]
     Active Substance: OMEPRAZOLE
     Indication: Dyspepsia
     Dosage: 40 MILLIGRAM DAILY; FREQUENCY -1 IN 1 DAYS 40 MG, QD
  22. SUMATRIPTAN [Concomitant]
     Active Substance: SUMATRIPTAN
     Indication: Migraine
     Dosage: 50 MILLIGRAM DAILY; FREQUENCY -1 IN 1 DAYS 50 MG, QD

REACTIONS (10)
  - Pituitary tumour benign [Unknown]
  - Hyperprolactinaemia [Recovering/Resolving]
  - Adrenal insufficiency [Recovered/Resolved]
  - Vision blurred [Unknown]
  - Secondary adrenocortical insufficiency [Recovered/Resolved]
  - Abdominal pain [Recovered/Resolved]
  - Dizziness [Recovered/Resolved]
  - Headache [Recovered/Resolved]
  - Vomiting [Recovered/Resolved]
  - Lethargy [Recovered/Resolved]

NARRATIVE: CASE EVENT DATE: 20091101
